FAERS Safety Report 8619236-9 (Version None)
Quarter: 2012Q3

REPORT INFORMATION
  Report Type: 
  Country: None (occurrence: None)
  Receive Date: 20120816
  Receipt Date: 20120816
  Transmission Date: 20120928
  Serious: No
  Sender: FDA-Public Use
  Company Number: None

PATIENT
  Sex: Female
  Weight: 69.4 kg

DRUGS (2)
  1. ELOXATIN [Suspect]
     Dosage: 290 MG
  2. FLUOROURACIL [Suspect]
     Dosage: 9480 MG

REACTIONS (1)
  - NEUTROPHIL COUNT DECREASED [None]
